FAERS Safety Report 4390759-4 (Version None)
Quarter: 2004Q3

REPORT INFORMATION
  Report Type: 
  Country: None (occurrence: None)
  Receive Date: 20040706
  Receipt Date: 20040706
  Transmission Date: 20050211
  Serious: Yes (Other)
  Sender: FDA-Public Use
  Company Number: None

PATIENT
  Age: 4 Year
  Sex: Female
  Weight: 11.3399 kg

DRUGS (1)
  1. DEFEROXAMINE MESYLATE [Suspect]
     Indication: ANAEMIA
     Dosage: 360 MG SQ DAILY
     Route: 058
     Dates: start: 20040602

REACTIONS (5)
  - ECZEMA [None]
  - ERYTHEMA [None]
  - INJECTION SITE ERYTHEMA [None]
  - INJECTION SITE OEDEMA [None]
  - SWELLING [None]
